FAERS Safety Report 11908968 (Version 4)
Quarter: 2016Q1

REPORT INFORMATION
  Report Type: Report from Study
  Country: US (occurrence: US)
  Receive Date: 20160111
  Receipt Date: 20160201
  Transmission Date: 20160526
  Serious: No
  Sender: FDA-Public Use
  Company Number: US-AMGEN-USASL2016000569

PATIENT
  Age: 65 Year
  Sex: Female

DRUGS (1)
  1. ENBREL [Suspect]
     Active Substance: ETANERCEPT
     Indication: RHEUMATOID ARTHRITIS
     Dosage: 50 MG, QWK
     Route: 065
     Dates: start: 20140807

REACTIONS (9)
  - Cough [Not Recovered/Not Resolved]
  - Sinusitis [Unknown]
  - Pyrexia [Not Recovered/Not Resolved]
  - Rhinalgia [Unknown]
  - Nasopharyngitis [Not Recovered/Not Resolved]
  - Vomiting [Not Recovered/Not Resolved]
  - Malaise [Not Recovered/Not Resolved]
  - Facial pain [Unknown]
  - Arthritis [Unknown]

NARRATIVE: CASE EVENT DATE: 20151230
